FAERS Safety Report 8605489-X (Version None)
Quarter: 2012Q3

REPORT INFORMATION
  Report Type: 
  Country: None (occurrence: None)
  Receive Date: 20120820
  Receipt Date: 20120330
  Transmission Date: 20120928
  Serious: Yes (Hospitalization, Other)
  Sender: FDA-Public Use
  Company Number: US-MYLANLABS-2012S1007568

PATIENT
  Age: 10 Year
  Sex: Female

DRUGS (5)
  1. DIPHENHYDRAMINE HCL [Suspect]
     Indication: HEREDITARY ANGIOEDEMA
     Route: 042
  2. MULTI-VITAMINS [Concomitant]
  3. EPINEPHRINE [Suspect]
     Indication: ANGIOEDEMA
     Route: 030
  4. METHYLPREDNISOLONE [Suspect]
     Indication: HEREDITARY ANGIOEDEMA
  5. ANTIHISTAMINES [Concomitant]

REACTIONS (2)
  - LARYNGEAL OEDEMA [None]
  - DRUG INEFFECTIVE [None]
